FAERS Safety Report 9925025 (Version 1)
Quarter: 2014Q1

REPORT INFORMATION
  Report Type: Spontaneous
  Country: US (occurrence: US)
  Receive Date: 20140226
  Receipt Date: 20140226
  Transmission Date: 20141002
  Serious: Yes (Hospitalization)
  Sender: FDA-Public Use
  Company Number: US-PFIZER INC-2014054792

PATIENT
  Age: 77 Year
  Sex: Male
  Weight: 63.95 kg

DRUGS (1)
  1. ZYVOX [Suspect]
     Dosage: UNK
     Dates: start: 2013, end: 2013

REACTIONS (1)
  - Pain [Unknown]
